FAERS Safety Report 6014787-8 (Version None)
Quarter: 2008Q4

REPORT INFORMATION
  Report Type: 
  Country: None (occurrence: None)
  Receive Date: 20081219
  Receipt Date: 20081212
  Transmission Date: 20090506
  Serious: Yes (Other)
  Sender: FDA-Public Use
  Company Number: PHEH2008US08164

PATIENT
  Sex: Female

DRUGS (7)
  1. ZOMETA [Suspect]
     Indication: BREAST CANCER METASTATIC
     Dosage: 4 MG, QMO
     Route: 042
     Dates: start: 20071101, end: 20080206
  2. TAXOTERE [Concomitant]
     Indication: BREAST CANCER
     Dosage: 112 MG, UNK
     Dates: start: 20070301, end: 20080301
  3. XELODA [Concomitant]
     Indication: BREAST CANCER
     Dosage: 1500 MG, UNK
     Dates: start: 20070301, end: 20080301
  4. IXABEPILONE [Concomitant]
     Indication: BREAST CANCER
     Dosage: 65 MG, UNK
     Dates: start: 20080401, end: 20080601
  5. CARBOPLATIN [Concomitant]
     Indication: BREAST CANCER
     Dosage: 270 MG, UNK
     Dates: start: 20080701
  6. GEMZAR [Concomitant]
     Indication: BREAST CANCER
     Dosage: 1590 MG, UNK
  7. RADIATION THERAPY [Concomitant]
     Indication: BREAST CANCER METASTATIC
     Dosage: 4000 CGY IN 20 FRACTION, UNK
     Dates: start: 20080401, end: 20080501

REACTIONS (5)
  - JAW DISORDER [None]
  - OSTEONECROSIS [None]
  - PAIN [None]
  - TOOTH EXTRACTION [None]
  - TOOTH INFECTION [None]
